FAERS Safety Report 6423135-0 (Version None)
Quarter: 2009Q4

REPORT INFORMATION
  Report Type: 
  Country: None (occurrence: None)
  Receive Date: 20091102
  Receipt Date: 20091022
  Transmission Date: 20100525
  Serious: Yes (Disabling)
  Sender: FDA-Public Use
  Company Number: TW-AVENTIS-200922009GDDC

PATIENT
  Age: 68 Year
  Sex: Male

DRUGS (2)
  1. TAXOTERE [Suspect]
     Route: 042
     Dates: start: 20091013
  2. CORTICOSTEROIDS [Concomitant]
     Indication: PREMEDICATION
     Dosage: DOSE: UNKNOWN
     Dates: start: 20091013

REACTIONS (2)
  - DYSURIA [None]
  - MUSCULAR WEAKNESS [None]
